FAERS Safety Report 4495201-0 (Version None)
Quarter: 2004Q4

REPORT INFORMATION
  Report Type: 
  Country: None (occurrence: None)
  Receive Date: 20041108
  Receipt Date: 20041025
  Transmission Date: 20050328
  Serious: Yes (Death, Hospitalization)
  Sender: FDA-Public Use
  Company Number: PHEH2004US11465

PATIENT
  Age: 54 Year
  Sex: Female

DRUGS (14)
  1. ZELNORM [Suspect]
     Indication: INTESTINAL HYPOMOTILITY
     Dosage: UNK, UNK
  2. ZELNORM [Suspect]
     Dosage: 2 MG, BID
     Route: 048
     Dates: start: 20040912, end: 20041023
  3. WARFARIN SODIUM [Suspect]
  4. PROMETHAZINE [Concomitant]
  5. MAGNESIUM OXIDE [Concomitant]
  6. ZOFRAN [Concomitant]
  7. DARVOCET-N 100 [Concomitant]
  8. TRAMADOL [Concomitant]
  9. COMPAZINE [Concomitant]
  10. POTASSIUM [Concomitant]
  11. REGLAN [Concomitant]
  12. ATIVAN [Concomitant]
  13. SOMA [Concomitant]
  14. ANTIBIOTICS [Concomitant]

REACTIONS (15)
  - BLOOD ELECTROLYTES ABNORMAL [None]
  - CLOSTRIDIAL INFECTION [None]
  - COLONIC PSEUDO-OBSTRUCTION [None]
  - DEATH [None]
  - DEHYDRATION [None]
  - DIARRHOEA [None]
  - GASTROINTESTINAL MOTILITY DISORDER [None]
  - HYPOALBUMINAEMIA [None]
  - IMMUNE SYSTEM DISORDER [None]
  - INTERNATIONAL NORMALISED RATIO INCREASED [None]
  - LUNG INFECTION PSEUDOMONAL [None]
  - MALABSORPTION [None]
  - MALNUTRITION [None]
  - STAPHYLOCOCCAL INFECTION [None]
  - WEIGHT DECREASED [None]
